FAERS Safety Report 15185881 (Version 1)
Quarter: 2018Q3

REPORT INFORMATION
  Report Type: Report from Study
  Country: US (occurrence: US)
  Receive Date: 20180723
  Receipt Date: 20180723
  Transmission Date: 20181010
  Serious: Yes (Other)
  Sender: FDA-Public Use
  Company Number: US-EXELIXIS-CABO-17011867

PATIENT
  Sex: Male

DRUGS (2)
  1. CABOMETYX [Suspect]
     Active Substance: CABOZANTINIB S-MALATE
     Indication: THYROID CANCER
     Dosage: 40 MG, SUN, TUES, THURS, SAT
     Route: 048
  2. CABOMETYX [Suspect]
     Active Substance: CABOZANTINIB S-MALATE
     Dosage: 60 MG, MON, WED, FRI

REACTIONS (5)
  - Dysphonia [Unknown]
  - Malignant neoplasm progression [Unknown]
  - Pain [Unknown]
  - Off label use [Unknown]
  - Hepatic failure [Unknown]
